FAERS Safety Report 6072919-X (Version None)
Quarter: 2009Q1

REPORT INFORMATION
  Report Type: 
  Country: None (occurrence: None)
  Receive Date: 20090206
  Receipt Date: 20090112
  Transmission Date: 20090719
  Serious: Yes (Life-Threatening, Hospitalization)
  Sender: FDA-Public Use
  Company Number: 230357K09USA

PATIENT
  Age: 64 Year
  Sex: Male

DRUGS (9)
  1. REBIF [Suspect]
     Indication: MULTIPLE SCLEROSIS
     Dosage: 44 MCG, 3 IN 1 WEEKS, SUBCUTANEOUS
     Route: 058
     Dates: start: 20060101
  2. PROZAC [Concomitant]
  3. CYMBALTA [Concomitant]
  4. LOVASTATIN [Concomitant]
  5. FUROSEMIDE [Concomitant]
  6. CLONIDINE [Concomitant]
  7. TEMAZEPAM [Concomitant]
  8. SULINDAC [Concomitant]
  9. METOPROLOL TARTRATE [Concomitant]

REACTIONS (2)
  - KIDNEY INFECTION [None]
  - RENAL FAILURE [None]
